FAERS Safety Report 24815557 (Version 1)
Quarter: 2025Q1

REPORT INFORMATION
  Report Type: Spontaneous
  Country: US (occurrence: None)
  Receive Date: 20250107
  Receipt Date: 20250107
  Transmission Date: 20250409
  Serious: No
  Sender: FDA-CTU
  Company Number: None

PATIENT
  Age: 77 Year
  Sex: Male

DRUGS (1)
  1. NAPROXEN [Suspect]
     Active Substance: NAPROXEN
     Indication: Pain
     Dosage: FREQUENCY : TWICE A DAY;?
     Route: 048

REACTIONS (6)
  - Upper gastrointestinal haemorrhage [None]
  - Haemoglobin decreased [None]
  - Haematocrit decreased [None]
  - Gastrooesophageal reflux disease [None]
  - Gastric ulcer [None]
  - Haemorrhage [None]

NARRATIVE: CASE EVENT DATE: 20240611
